FAERS Safety Report 7340014-5 (Version None)
Quarter: 2011Q1

REPORT INFORMATION
  Report Type: 
  Country: None (occurrence: None)
  Receive Date: 20110309
  Receipt Date: 20110207
  Transmission Date: 20110831
  Serious: No
  Sender: FDA-Public Use
  Company Number: US-PFIZER INC-2011038351

PATIENT
  Sex: Female

DRUGS (5)
  1. LEFLUNOMIDE [Concomitant]
  2. HYDROXYCHLOROQUINE [Concomitant]
  3. SULFASALAZINE [Suspect]
     Indication: RHEUMATOID ARTHRITIS
     Dosage: UNK
     Dates: start: 20100901
  4. ENBREL [Concomitant]
     Indication: RHEUMATOID ARTHRITIS
     Dosage: 50 MG, QWK
     Dates: start: 20100710, end: 20100901
  5. METHOTREXATE [Concomitant]

REACTIONS (3)
  - DRUG HYPERSENSITIVITY [None]
  - DNA ANTIBODY POSITIVE [None]
  - DRUG EFFECT DECREASED [None]
